FAERS Safety Report 20076639 (Version 1)
Quarter: 2021Q4

REPORT INFORMATION
  Report Type: Report from Study
  Country: IL (occurrence: IL)
  Receive Date: 20211116
  Receipt Date: 20211116
  Transmission Date: 20220303
  Serious: Yes (Hospitalization)
  Sender: FDA-Public Use
  Company Number: IL-CELGENE-ISR-20211103498

PATIENT

DRUGS (2)
  1. INREBIC [Suspect]
     Active Substance: FEDRATINIB HYDROCHLORIDE
     Indication: Myelofibrosis
     Dosage: 400 MILLIGRAM
     Route: 048
     Dates: start: 20211025, end: 20211102
  2. THIAMINE [Concomitant]
     Active Substance: THIAMINE
     Indication: Product used for unknown indication
     Route: 065

REACTIONS (4)
  - Dyspnoea [Unknown]
  - Blood lactate dehydrogenase increased [Unknown]
  - Blood creatinine increased [Unknown]
  - Fibrin D dimer increased [Unknown]

NARRATIVE: CASE EVENT DATE: 20211102
